FAERS Safety Report 4589570-0 (Version None)
Quarter: 2005Q1

REPORT INFORMATION
  Report Type: 
  Country: None (occurrence: None)
  Receive Date: 20050223
  Receipt Date: 20050202
  Transmission Date: 20050727
  Serious: Yes (Life-Threatening, Hospitalization)
  Sender: FDA-Public Use
  Company Number: HQWYE075603FEB05

PATIENT
  Sex: Female

DRUGS (4)
  1. ENBREL [Suspect]
     Indication: RHEUMATOID ARTHRITIS
     Route: 058
     Dates: start: 20031101, end: 20040201
  2. METHOTREXATE [Concomitant]
     Dates: start: 19970101
  3. ARAVA [Concomitant]
     Dates: start: 20010101
  4. PREDNISOLONE [Concomitant]
     Dates: start: 19960101

REACTIONS (5)
  - CARDIAC FAILURE [None]
  - CORONARY ARTERY DISEASE [None]
  - HYPOTENSION [None]
  - PNEUMONIA [None]
  - VENTRICULAR DYSFUNCTION [None]
